FAERS Safety Report 8061195-4 (Version None)
Quarter: 2012Q1

REPORT INFORMATION
  Report Type: 
  Country: None (occurrence: None)
  Receive Date: 20120120
  Receipt Date: 20120116
  Transmission Date: 20120608
  Serious: Yes (Hospitalization, Other)
  Sender: FDA-Public Use
  Company Number: IE-ASTRAZENECA-2011SE45079

PATIENT
  Age: 78 Year
  Sex: Male

DRUGS (8)
  1. CRESTOR [Suspect]
     Indication: HYPERCHOLESTEROLAEMIA
     Route: 048
  2. DECAPEPTYL [Concomitant]
     Dates: start: 20111101
  3. BISOPROLOL FUMARATE [Concomitant]
     Dates: start: 20080213
  4. LIPITOR [Concomitant]
     Dates: start: 20111101
  5. ENALAPRIL MALEATE AND HYDROCHLOROTHIAZIDE [Concomitant]
     Dates: start: 20080213
  6. NU-SEALS ASPIRIN [Concomitant]
     Dates: start: 20090205
  7. WARFARIN TEVA [Concomitant]
     Dates: start: 20111101
  8. ALLOPURINOL [Concomitant]
     Dates: start: 20080213

REACTIONS (9)
  - ATRIAL FIBRILLATION [None]
  - VISION BLURRED [None]
  - DIZZINESS [None]
  - ISCHAEMIC STROKE [None]
  - HAEMORRHAGIC STROKE [None]
  - CEREBRAL INFARCTION [None]
  - CAROTID ARTERY STENOSIS [None]
  - TRANSIENT ISCHAEMIC ATTACK [None]
  - PETECHIAE [None]
